FAERS Safety Report 22210274 (Version 1)
Quarter: 2023Q2

REPORT INFORMATION
  Report Type: Spontaneous
  Country: AR (occurrence: AR)
  Receive Date: 20230414
  Receipt Date: 20230414
  Transmission Date: 20230722
  Serious: Yes (Hospitalization, Other)
  Sender: FDA-Public Use
  Company Number: AR-SA-SAC20230411001132

PATIENT
  Sex: Female

DRUGS (1)
  1. LEMTRADA [Suspect]
     Active Substance: ALEMTUZUMAB
     Dosage: UNK
     Route: 065
     Dates: start: 202002, end: 202002

REACTIONS (5)
  - Deep vein thrombosis [Unknown]
  - Polyhydramnios [Unknown]
  - Uterine rupture [Unknown]
  - Premature labour [Unknown]
  - Exposure during pregnancy [Unknown]
